FAERS Safety Report 16469592 (Version 1)
Quarter: 2019Q2

REPORT INFORMATION
  Report Type: Report from Study
  Country: CZ (occurrence: CZ)
  Receive Date: 20190624
  Receipt Date: 20190624
  Transmission Date: 20190711
  Serious: Yes (Other)
  Sender: FDA-Public Use
  Company Number: CZ-UCBSA-2019026263

PATIENT
  Age: 21 Year
  Sex: Female

DRUGS (2)
  1. PENBENE [PHENOXYMETHYLPENICILLIN] [Concomitant]
     Indication: PRODUCT USED FOR UNKNOWN INDICATION
  2. CIMZIA [Suspect]
     Active Substance: CERTOLIZUMAB PEGOL
     Indication: PSORIATIC ARTHROPATHY
     Dosage: UNK
     Route: 058
     Dates: end: 20190201

REACTIONS (1)
  - Perirectal abscess [Recovering/Resolving]

NARRATIVE: CASE EVENT DATE: 20190325
